FAERS Safety Report 6007647-X (Version None)
Quarter: 2008Q4

REPORT INFORMATION
  Report Type: 
  Country: None (occurrence: None)
  Receive Date: 20081217
  Receipt Date: 20080428
  Transmission Date: 20090506
  Serious: Yes (Other)
  Sender: FDA-Public Use
  Company Number: US-ASTRAZENECA-2008UW06175

PATIENT
  Age: 26715 Day
  Sex: Male
  Weight: 94.3 kg

DRUGS (4)
  1. CRESTOR [Suspect]
     Indication: HYPERLIPIDAEMIA
     Route: 048
     Dates: start: 20070821, end: 20071015
  2. STARLIX [Concomitant]
  3. PROTONIX [Concomitant]
  4. LANTUS [Concomitant]

REACTIONS (1)
  - MYOSITIS [None]
